FAERS Safety Report 8311036-2 (Version None)
Quarter: 2012Q2

REPORT INFORMATION
  Report Type: 
  Country: None (occurrence: None)
  Receive Date: 20120425
  Receipt Date: 20120419
  Transmission Date: 20120825
  Serious: No
  Sender: FDA-Public Use
  Company Number: US-BIOGENIDEC-2012BI013693

PATIENT
  Sex: Female

DRUGS (4)
  1. TYSABRI [Suspect]
     Route: 042
     Dates: start: 20090916, end: 20110316
  2. AVONEX [Concomitant]
     Indication: MULTIPLE SCLEROSIS
     Route: 030
  3. TYSABRI [Suspect]
     Indication: MULTIPLE SCLEROSIS
     Route: 042
     Dates: start: 20060922, end: 20071219
  4. TYSABRI [Suspect]
     Route: 042
     Dates: start: 20120328

REACTIONS (8)
  - PAIN [None]
  - DEPRESSION [None]
  - NEURALGIA [None]
  - COGNITIVE DISORDER [None]
  - EYE DISORDER [None]
  - BLOOD GLUCOSE INCREASED [None]
  - MULTIPLE SCLEROSIS [None]
  - FATIGUE [None]
